FAERS Safety Report 6718358-7 (Version None)
Quarter: 2010Q2

REPORT INFORMATION
  Report Type: 
  Country: None (occurrence: None)
  Receive Date: 20100505
  Receipt Date: 20100420
  Transmission Date: 20101027
  Serious: Yes (Death, Hospitalization)
  Sender: FDA-Public Use
  Company Number: AUR-APL-2010-01146

PATIENT
  Age: 85 Year
  Sex: Male

DRUGS (6)
  1. METFORMIN HYDROCHLORIDE [Suspect]
     Indication: TYPE 2 DIABETES MELLITUS
     Dosage: 850MG, BID, ORAL
     Route: 048
     Dates: end: 20080727
  2. CAPTOPRIL [Suspect]
     Indication: HYPERTENSION
     Dosage: 1DF, BID, ORAL
     Route: 048
     Dates: start: 20080501, end: 20080717
  3. AGGRENOX [Suspect]
     Indication: CEREBROVASCULAR ACCIDENT
     Dosage: 1 DF - BID - ORAL
     Route: 048
     Dates: start: 20080501, end: 20080717
  4. TRIAMTERENE AND HYDROCHLOROTHIAZIDE [Suspect]
     Indication: HYPERTENSION
     Dosage: 1 DF - DAILY - ORAL
     Route: 048
     Dates: end: 20080717
  5. MADOPAR(LEVODOPA BENSERAZIDE HCI) [Suspect]
     Indication: CEREBROVASCULAR ACCIDENT
     Dosage: 125MG - TID - ORAL
     Route: 048
     Dates: end: 20080720
  6. EXELON [Concomitant]

REACTIONS (15)
  - ACIDOSIS HYPERCHLORAEMIC [None]
  - BLOOD PRESSURE DIASTOLIC DECREASED [None]
  - DEHYDRATION [None]
  - DIABETIC NEPHROPATHY [None]
  - DIARRHOEA [None]
  - GENERAL PHYSICAL HEALTH DETERIORATION [None]
  - HYPERKALAEMIA [None]
  - HYPERNATRAEMIA [None]
  - HYPOALDOSTERONISM [None]
  - HYPOPHAGIA [None]
  - MALAISE [None]
  - PNEUMONIA [None]
  - RENAL FAILURE ACUTE [None]
  - SOMNOLENCE [None]
  - UNEVALUABLE EVENT [None]
